FAERS Safety Report 20152594 (Version 3)
Quarter: 2022Q1

REPORT INFORMATION
  Report Type: Report from Study
  Country: AT (occurrence: AT)
  Receive Date: 20211206
  Receipt Date: 20220210
  Transmission Date: 20220424
  Serious: Yes (Hospitalization)
  Sender: FDA-Public Use
  Company Number: AT-TEVA-2021-AT-1984226

PATIENT
  Age: 0 Year
  Sex: Female

DRUGS (11)
  1. COPAXONE [Suspect]
     Active Substance: GLATIRAMER ACETATE
     Indication: Multiple sclerosis
     Route: 064
     Dates: start: 20200518, end: 20201214
  2. COPAXONE [Suspect]
     Active Substance: GLATIRAMER ACETATE
     Route: 063
     Dates: start: 20201215
  3. TYSABRI [Concomitant]
     Active Substance: NATALIZUMAB
     Indication: Multiple sclerosis
     Dates: start: 201910, end: 20200714
  4. TYSABRI [Concomitant]
     Active Substance: NATALIZUMAB
     Dates: start: 20200421, end: 20200714
  5. VELNATAL PLUS [Concomitant]
     Dosage: 1 DOSAGE FORMS DAILY;
     Dates: start: 202004, end: 202109
  6. VELNATAL PLUS [Concomitant]
     Dosage: 1 DOSAGE FORMS DAILY;
     Dates: start: 20201215, end: 20210915
  7. MAGNESIUM [Concomitant]
     Active Substance: MAGNESIUM
     Indication: Mineral supplementation
     Dosage: 1 DOSAGE FORMS DAILY;
     Dates: start: 202006, end: 202109
  8. MAGNESIUM [Concomitant]
     Active Substance: MAGNESIUM
     Dosage: 1 DOSAGE FORMS DAILY;
     Dates: start: 20201215, end: 20210915
  9. Magnonorm Genericon [Concomitant]
     Indication: Mineral supplementation
     Dosage: 365 MILLIGRAM DAILY;
     Dates: start: 202004, end: 202006
  10. Maxi-Kalz [Concomitant]
     Indication: Mineral supplementation
     Dosage: 500 MILLIGRAM DAILY;
     Dates: start: 202004, end: 202112
  11. Nerisona Salbe [Concomitant]
     Indication: Eczema
     Dosage: 1 DOSAGE FORMS DAILY; IN THE MORNING
     Dates: start: 20200701, end: 202008

REACTIONS (6)
  - Foetal heart rate decreased [Recovered/Resolved]
  - Jaundice [Recovered/Resolved]
  - Weight decrease neonatal [Recovering/Resolving]
  - Gastrointestinal infection [Recovered/Resolved]
  - Foetal exposure during pregnancy [Unknown]
  - Exposure via breast milk [Unknown]

NARRATIVE: CASE EVENT DATE: 20200518
